FAERS Safety Report 7332759 (Version 2)
Quarter: 2014Q1

REPORT INFORMATION
  Report Type: Spontaneous
  Country: AU (occurrence: AU)
  Receive Date: 20100326
  Receipt Date: 20140203
  Transmission Date: 20141002
  Serious: No
  Sender: FDA-Public Use
  Company Number: AU-JNJFOC-20100304923

PATIENT
  Sex: Female

DRUGS (1)
  1. DUROGESIC [Suspect]
     Indication: PRODUCT USED FOR UNKNOWN INDICATION
     Dosage: 2 PATCHES OF 100UG/HR AND ONE 25UG/HR PATCH
     Route: 062
     Dates: start: 20100305

REACTIONS (3)
  - Wrong technique in drug usage process [Unknown]
  - Drug withdrawal syndrome [Unknown]
  - Product quality issue [Not Recovered/Not Resolved]
